FAERS Safety Report 13687293 (Version 3)
Quarter: 2017Q3

REPORT INFORMATION
  Report Type: Report from Study
  Country: PL (occurrence: PL)
  Receive Date: 20170623
  Receipt Date: 20170711
  Transmission Date: 20171127
  Serious: Yes (Life-Threatening, Hospitalization)
  Sender: FDA-Public Use
  Company Number: PL-OTSUKA-2017_013705

PATIENT
  Age: 77 Year
  Sex: Male
  Weight: 80 kg

DRUGS (2)
  1. DECITABINE. [Suspect]
     Active Substance: DECITABINE
     Indication: ACUTE MYELOID LEUKAEMIA
     Dosage: 39 MG, 5 IN 1 MONTH 5 DAYS A MONTH
     Route: 042
     Dates: start: 20170607
  2. *JNJ-56022473 [Suspect]
     Active Substance: INVESTIGATIONAL PRODUCT
     Indication: ACUTE MYELOID LEUKAEMIA
     Dosage: 718 MG, 2 IN 1 MONTH TWO TIMES PER EVERY 28 DAYS CYCLE
     Route: 042
     Dates: start: 20170614

REACTIONS (2)
  - Bradycardia [Recovered/Resolved]
  - Hyperuricaemia [Recovered/Resolved]

NARRATIVE: CASE EVENT DATE: 20170610
